FAERS Safety Report 4607385-1 (Version None)
Quarter: 2005Q1

REPORT INFORMATION
  Report Type: 
  Country: None (occurrence: None)
  Receive Date: 20050309
  Receipt Date: 20050224
  Transmission Date: 20050727
  Serious: Yes (Other)
  Sender: FDA-Public Use
  Company Number: 6013259

PATIENT
  Age: 56 Year
  Sex: Male

DRUGS (1)
  1. BISOPROLOL FUMARATE [Suspect]
     Indication: ATRIAL FIBRILLATION
     Dosage: 5 MG
     Route: 048
     Dates: start: 20040813, end: 20040813

REACTIONS (6)
  - ANGINA PECTORIS [None]
  - ARTERIOSPASM CORONARY [None]
  - ATRIOVENTRICULAR BLOCK COMPLETE [None]
  - CONVULSION [None]
  - ELECTROCARDIOGRAM ST SEGMENT ELEVATION [None]
  - VENTRICULAR FIBRILLATION [None]
